FAERS Safety Report 8125166-1 (Version None)
Quarter: 2012Q1

REPORT INFORMATION
  Report Type: 
  Country: None (occurrence: None)
  Receive Date: 20120209
  Receipt Date: 20120201
  Transmission Date: 20120608
  Serious: Yes (Other)
  Sender: FDA-Public Use
  Company Number: US-BAYER-2011-029611

PATIENT
  Age: 19 Year
  Sex: Female
  Weight: 104.31 kg

DRUGS (5)
  1. ZOLOFT [Concomitant]
  2. PHENERGAN [Concomitant]
  3. IMITREX [Concomitant]
  4. ALBUTEROL [Concomitant]
  5. YAZ [Suspect]
     Dosage: UNK
     Route: 048
     Dates: start: 20080423, end: 20091201

REACTIONS (8)
  - CHOLECYSTITIS [None]
  - FEAR [None]
  - EMOTIONAL DISTRESS [None]
  - PAIN [None]
  - PSYCHOLOGICAL TRAUMA [None]
  - ANXIETY [None]
  - ABDOMINAL PAIN UPPER [None]
  - INJURY [None]
